FAERS Safety Report 18203854 (Version 6)
Quarter: 2024Q4

REPORT INFORMATION
  Report Type: Spontaneous
  Country: CA (occurrence: CA)
  Receive Date: 20200827
  Receipt Date: 20241017
  Transmission Date: 20250115
  Serious: Yes (Life-Threatening, Hospitalization, Other)
  Sender: BAYER HEALTHCARE PHARMACEUTICALS INC.
  Company Number: CA-BAYER-2020-179262

PATIENT
  Age: 55 Year
  Sex: Male

DRUGS (7)
  1. CIPRO [Interacting]
     Active Substance: CIPROFLOXACIN HYDROCHLORIDE
     Indication: Pneumonia klebsiella
     Dosage: 750 MG, BID
     Route: 048
  2. CIPRO [Interacting]
     Active Substance: CIPROFLOXACIN HYDROCHLORIDE
     Indication: Pneumonia klebsiella
     Dosage: UNK
  3. AMIODARONE [Interacting]
     Active Substance: AMIODARONE
     Indication: Atrial fibrillation
     Dosage: 400 MG, TID
     Route: 048
  4. AMIODARONE [Interacting]
     Active Substance: AMIODARONE
     Indication: Atrial fibrillation
     Dosage: UNK
  5. ATORVASTATIN [Interacting]
     Active Substance: ATORVASTATIN
     Indication: Acute myocardial infarction
     Dosage: 80 MG, QD
  6. ATORVASTATIN [Interacting]
     Active Substance: ATORVASTATIN
     Indication: Atrial fibrillation
     Dosage: UNK
  7. INSULIN NOS [Concomitant]
     Active Substance: INSULIN NOS
     Indication: Diabetes mellitus
     Route: 048

REACTIONS (9)
  - Rhabdomyolysis [Recovered/Resolved]
  - Pneumonia [Recovered/Resolved]
  - Drug interaction [Recovered/Resolved]
  - Blood creatine increased [None]
  - Chromaturia [Recovered/Resolved]
  - Blood creatine phosphokinase increased [Recovered/Resolved]
  - Myoglobin urine present [None]
  - Blood lactate dehydrogenase increased [None]
  - Product use in unapproved indication [Recovered/Resolved]
